FAERS Safety Report 4932956-2 (Version None)
Quarter: 2006Q1

REPORT INFORMATION
  Report Type: 
  Country: None (occurrence: None)
  Receive Date: 20060306
  Receipt Date: 20060224
  Transmission Date: 20060701
  Serious: Yes (Hospitalization)
  Sender: FDA-Public Use
  Company Number: PHRM2006FR00927

PATIENT
  Age: 40 Year
  Sex: Male

DRUGS (1)
  1. FORADIL [Suspect]
     Indication: ASTHMA

REACTIONS (2)
  - GASTROINTESTINAL DISORDER [None]
  - TRANSAMINASES INCREASED [None]
